FAERS Safety Report 11833230 (Version 1)
Quarter: 2015Q4

REPORT INFORMATION
  Report Type: Spontaneous
  Country: DE (occurrence: DE)
  Receive Date: 20151214
  Receipt Date: 20151214
  Transmission Date: 20160305
  Serious: Yes (Other)
  Sender: FDA-Public Use
  Company Number: DE-SA-2015SA206302

PATIENT

DRUGS (1)
  1. AUBAGIO [Suspect]
     Active Substance: TERIFLUNOMIDE
     Indication: MULTIPLE SCLEROSIS
     Route: 048

REACTIONS (6)
  - Suicidal ideation [Unknown]
  - Alopecia [Unknown]
  - Diarrhoea [Unknown]
  - Personality change [Unknown]
  - Irritability [Unknown]
  - Depressed mood [Unknown]
